FAERS Safety Report 8827965 (Version 2)
Quarter: 2013Q1

REPORT INFORMATION
  Report Type: Spontaneous
  Country: AU (occurrence: AU)
  Receive Date: 20121008
  Receipt Date: 20130118
  Transmission Date: 20140127
  Serious: Yes (Other)
  Sender: FDA-Public Use
  Company Number: AU-009507513-1210AUS001945

PATIENT
  Age: 99 Year
  Sex: Female

DRUGS (3)
  1. AVANZA [Suspect]
     Indication: DEPRESSION
     Dosage: 60 MG, QD
     Route: 048
     Dates: start: 2002
  2. EFEXOR [Suspect]
     Indication: DEPRESSION
     Dosage: TAKES 6 TABLETS DAILY
     Route: 048
     Dates: start: 2009
  3. SEROQUEL [Concomitant]
     Indication: DEPRESSION
     Dosage: 50 MG, QD
     Route: 048
     Dates: start: 200805

REACTIONS (4)
  - Suicide attempt [Unknown]
  - Gambling [Unknown]
  - Theft [Unknown]
  - Mood swings [Unknown]
